FAERS Safety Report 23950626 (Version 2)
Quarter: 2024Q3

REPORT INFORMATION
  Report Type: Spontaneous
  Country: US (occurrence: US)
  Receive Date: 20240607
  Receipt Date: 20240819
  Transmission Date: 20241017
  Serious: Yes (Hospitalization, Other)
  Sender: SANOFI AVENTIS
  Company Number: US-SA-2024SA168580

PATIENT
  Age: 73 Year
  Sex: Female

DRUGS (22)
  1. DUPILUMAB [Suspect]
     Active Substance: DUPILUMAB
     Indication: Eczema
  2. PIPERACILLIN AND TAZOBACTAM [Concomitant]
     Active Substance: PIPERACILLIN SODIUM\TAZOBACTAM SODIUM
     Indication: Proctalgia
     Route: 042
  3. VANCOMYCIN HYDROCHLORIDE [Concomitant]
     Active Substance: VANCOMYCIN HYDROCHLORIDE
     Indication: Proctalgia
  4. AMOXICILLIN\CLAVULANIC ACID [Concomitant]
     Active Substance: AMOXICILLIN\CLAVULANIC ACID
     Indication: Proctalgia
  5. DOXYCYCLINE [Concomitant]
     Active Substance: DOXYCYCLINE\DOXYCYCLINE HYCLATE
     Indication: Proctalgia
  6. ACITRETIN [Concomitant]
     Active Substance: ACITRETIN
     Indication: Psoriasis
  7. BETAMETHASONE [Concomitant]
     Active Substance: BETAMETHASONE\BETAMETHASONE DIPROPIONATE
     Indication: Psoriasis
     Route: 061
  8. CLOBETASOL [Concomitant]
     Active Substance: CLOBETASOL
     Indication: Psoriasis
  9. TRIAMCINOLONE [Concomitant]
     Active Substance: TRIAMCINOLONE
     Indication: Psoriasis
  10. VALACYCLOVIR [Concomitant]
     Active Substance: VALACYCLOVIR HYDROCHLORIDE
     Indication: Herpes simplex
  11. AMLODIPINE [Concomitant]
     Active Substance: AMLODIPINE BESYLATE
  12. DOXEPIN [Concomitant]
     Active Substance: DOXEPIN
  13. GABAPENTIN [Concomitant]
     Active Substance: GABAPENTIN
  14. INSULIN GLARGINE [Concomitant]
     Active Substance: INSULIN GLARGINE
     Indication: Type 2 diabetes mellitus
  15. INSULIN LISPRO [Concomitant]
     Active Substance: INSULIN LISPRO
     Indication: Type 2 diabetes mellitus
  16. METOPROLOL [Concomitant]
     Active Substance: METOPROLOL
  17. RISPERIDONE [Concomitant]
     Active Substance: RISPERIDONE
  18. LORAZEPAM [Concomitant]
     Active Substance: LORAZEPAM
     Indication: Anxiety
  19. ACYCLOVIR [Concomitant]
     Active Substance: ACYCLOVIR
     Indication: Eczema herpeticum
  20. CEFTRIAXONE [Concomitant]
     Active Substance: CEFTRIAXONE\CEFTRIAXONE SODIUM
     Indication: Eczema herpeticum
  21. VANCOMYCIN [Concomitant]
     Active Substance: VANCOMYCIN
     Indication: Eczema herpeticum
  22. CEFEPIME HYDROCHLORIDE [Concomitant]
     Active Substance: CEFEPIME HYDROCHLORIDE
     Indication: Pseudomonas infection

REACTIONS (6)
  - Angioimmunoblastic T-cell lymphoma [Unknown]
  - Eosinophilia [Unknown]
  - Lymphadenopathy [Unknown]
  - Hypergammaglobulinaemia [Unknown]
  - Dermatitis exfoliative generalised [Unknown]
  - Eye disorder [Unknown]
